FAERS Safety Report 23431053 (Version 6)
Quarter: 2025Q1

REPORT INFORMATION
  Report Type: Spontaneous
  Country: US (occurrence: US)
  Receive Date: 20240123
  Receipt Date: 20250205
  Transmission Date: 20250409
  Serious: Yes (Hospitalization, Other)
  Sender: SANOFI AVENTIS
  Company Number: US-SA-SAC20240117000957

PATIENT
  Age: 67 Year
  Sex: Female

DRUGS (5)
  1. DUPIXENT [Suspect]
     Active Substance: DUPILUMAB
     Indication: Neurodermatitis
     Route: 058
     Dates: start: 202311, end: 202311
  2. DUPIXENT [Suspect]
     Active Substance: DUPILUMAB
     Dosage: 300 MG, Q15D
     Route: 058
     Dates: start: 2023
  3. GABAPENTIN [Concomitant]
     Active Substance: GABAPENTIN
  4. PREDNISONE [Concomitant]
     Active Substance: PREDNISONE
  5. DIFLUCAN [Concomitant]
     Active Substance: FLUCONAZOLE

REACTIONS (7)
  - Pneumonia [Unknown]
  - Sepsis [Unknown]
  - Hospitalisation [Unknown]
  - Pain [Unknown]
  - Urinary tract infection [Unknown]
  - Injection site pain [Unknown]
  - Arthralgia [Unknown]

NARRATIVE: CASE EVENT DATE: 20240529
